FAERS Safety Report 13559551 (Version 2)
Quarter: 2017Q2

REPORT INFORMATION
  Report Type: Spontaneous
  Country: US (occurrence: US)
  Receive Date: 20170518
  Receipt Date: 20170525
  Transmission Date: 20170830
  Serious: Yes (Other)
  Sender: FDA-Public Use
  Company Number: US-BAYER-2017-089416

PATIENT
  Age: 59 Year
  Sex: Male

DRUGS (3)
  1. TERIFLUNOMIDE [Concomitant]
     Active Substance: TERIFLUNOMIDE
     Dosage: UNK
  2. BETASERON [Suspect]
     Active Substance: INTERFERON BETA-1B
     Indication: MULTIPLE SCLEROSIS
     Dosage: UNK
  3. AMPYRA [Suspect]
     Active Substance: DALFAMPRIDINE
     Indication: MULTIPLE SCLEROSIS
     Dosage: 10 MG, UNK

REACTIONS (10)
  - Hemianaesthesia [None]
  - Pain [None]
  - Pruritus [None]
  - Mental disorder [None]
  - Injection site abscess [None]
  - Impaired driving ability [None]
  - Fatigue [None]
  - Dyspnoea [None]
  - Hemiparaesthesia [None]
  - Injection site reaction [None]

NARRATIVE: CASE EVENT DATE: 201610
